FAERS Safety Report 5701886-0 (Version None)
Quarter: 2008Q2

REPORT INFORMATION
  Report Type: 
  Country: None (occurrence: None)
  Receive Date: 20080408
  Receipt Date: 20080331
  Transmission Date: 20081010
  Serious: Yes (Death, Hospitalization)
  Sender: FDA-Public Use
  Company Number: 2008JP001666

PATIENT
  Age: 79 Year
  Sex: Male

DRUGS (13)
  1. TACROLIMUS [Suspect]
     Indication: RHEUMATOID ARTHRITIS
     Dosage: 0.5 MG, D, ORAL
     Route: 048
     Dates: start: 20070308
  2. PREDNISOLONE [Concomitant]
  3. RHEUMATREX [Concomitant]
  4. VOLTAREN (DICLOFENAC) TAPE [Concomitant]
  5. BIOLACTICS (LACTOBACILLUS CASEI) [Concomitant]
  6. FERROMIA (FERROUS CITRATE) [Concomitant]
  7. ISONIAZID [Concomitant]
  8. URSO 250 [Concomitant]
  9. NIZATIDINE [Concomitant]
  10. BASEN (VOGLIBOSE) [Concomitant]
  11. LOSARTAN POTASSIUM [Concomitant]
  12. AMLODIPINE BESYLATE [Concomitant]
  13. AMARYL [Concomitant]

REACTIONS (2)
  - CHEST PAIN [None]
  - MULTI-ORGAN FAILURE [None]
